FAERS Safety Report 7859857-4 (Version None)
Quarter: 2011Q4

REPORT INFORMATION
  Report Type: 
  Country: None (occurrence: None)
  Receive Date: 20111026
  Receipt Date: 20111026
  Transmission Date: 20120403
  Serious: No
  Sender: FDA-Public Use
  Company Number: None

PATIENT
  Age: 54 Year
  Sex: Female

DRUGS (1)
  1. CREST PROHEALTH MOUTHWASH [Suspect]

REACTIONS (4)
  - TOOTH DISCOLOURATION [None]
  - TONGUE DISCOLOURATION [None]
  - AGEUSIA [None]
  - BURNING SENSATION [None]
